FAERS Safety Report 11159840 (Version 1)
Quarter: 2015Q2

REPORT INFORMATION
  Report Type: Spontaneous
  Country: BR (occurrence: BR)
  Receive Date: 20150603
  Receipt Date: 20150603
  Transmission Date: 20150821
  Serious: Yes (Other)
  Sender: FDA-Public Use
  Company Number: BR-ELI_LILLY_AND_COMPANY-BR201505008869

PATIENT
  Age: 72 Year
  Sex: Female
  Weight: 64 kg

DRUGS (7)
  1. JANUVIA [Concomitant]
     Active Substance: SITAGLIPTIN PHOSPHATE
     Dosage: UNK, UNKNOWN
     Route: 065
  2. SINVASTATINA [Concomitant]
     Active Substance: SIMVASTATIN
     Dosage: UNK, UNKNOWN
     Route: 065
  3. HIDRALAZINA                        /00007601/ [Concomitant]
     Dosage: UNK, UNKNOWN
     Route: 065
  4. LOSARTAN + HIDROCLOROTIAZIDA       /01284801/ [Concomitant]
     Dosage: UNK, UNKNOWN
     Route: 065
  5. DIOSMIN [Concomitant]
     Active Substance: DIOSMIN
     Dosage: UNK, UNKNOWN
     Route: 065
  6. HUMULIN N [Suspect]
     Active Substance: INSULIN HUMAN
     Indication: DIABETES MELLITUS
     Dosage: 24 IU, EACH MORNING
     Route: 058
     Dates: start: 2003
  7. HUMULIN N [Suspect]
     Active Substance: INSULIN HUMAN
     Dosage: 12 IU, EACH EVENING
     Route: 058
     Dates: start: 2003

REACTIONS (4)
  - Hypoglycaemia [Recovering/Resolving]
  - Renal failure [Recovered/Resolved]
  - Hypotension [Recovering/Resolving]
  - Visual impairment [Not Recovered/Not Resolved]

NARRATIVE: CASE EVENT DATE: 2004
